FAERS Safety Report 5522868-8 (Version None)
Quarter: 2007Q4

REPORT INFORMATION
  Report Type: 
  Country: None (occurrence: None)
  Receive Date: 20071121
  Receipt Date: 20071120
  Transmission Date: 20080405
  Serious: Yes (Other)
  Sender: FDA-Public Use
  Company Number: US-RB-008227-07

PATIENT
  Sex: Female

DRUGS (3)
  1. SUBUTEX [Suspect]
     Route: 060
     Dates: start: 20070901, end: 20071006
  2. SUBUTEX [Suspect]
     Route: 060
     Dates: start: 20071007
  3. NEURONTIN [Concomitant]
     Route: 048

REACTIONS (3)
  - DEPRESSION [None]
  - FATIGUE [None]
  - HALLUCINATION [None]
